FAERS Safety Report 13410481 (Version 2)
Quarter: 2017Q4

REPORT INFORMATION
  Report Type: Spontaneous
  Country: US (occurrence: US)
  Receive Date: 20170406
  Receipt Date: 20171123
  Transmission Date: 20180320
  Serious: No
  Sender: FDA-Public Use
  Company Number: US-JNJFOC-20170227057

PATIENT
  Age: 10 Year
  Sex: Male

DRUGS (36)
  1. RISPERDAL [Suspect]
     Active Substance: RISPERIDONE
     Indication: INTELLECTUAL DISABILITY
     Route: 048
     Dates: start: 20120730
  2. RISPERDAL [Suspect]
     Active Substance: RISPERIDONE
     Indication: INTELLECTUAL DISABILITY
     Route: 048
     Dates: start: 20040723
  3. RISPERDAL [Suspect]
     Active Substance: RISPERIDONE
     Indication: OPPOSITIONAL DEFIANT DISORDER
     Route: 048
     Dates: start: 20050708, end: 20051013
  4. RISPERDAL [Suspect]
     Active Substance: RISPERIDONE
     Indication: OPPOSITIONAL DEFIANT DISORDER
     Route: 048
     Dates: start: 20040930, end: 20041206
  5. RISPERDAL [Suspect]
     Active Substance: RISPERIDONE
     Indication: ATTENTION DEFICIT/HYPERACTIVITY DISORDER
     Route: 048
     Dates: start: 20050503
  6. RISPERDAL [Suspect]
     Active Substance: RISPERIDONE
     Indication: ATTENTION DEFICIT/HYPERACTIVITY DISORDER
     Route: 048
     Dates: start: 20040723
  7. RISPERIDONE. [Suspect]
     Active Substance: RISPERIDONE
     Indication: OPPOSITIONAL DEFIANT DISORDER
     Route: 048
     Dates: start: 19980604, end: 20051201
  8. RISPERIDONE. [Suspect]
     Active Substance: RISPERIDONE
     Indication: ATTENTION DEFICIT/HYPERACTIVITY DISORDER
     Route: 048
     Dates: start: 19980604, end: 20051201
  9. RISPERDAL [Suspect]
     Active Substance: RISPERIDONE
     Indication: INTELLECTUAL DISABILITY
     Route: 048
     Dates: start: 20050503
  10. RISPERDAL [Suspect]
     Active Substance: RISPERIDONE
     Indication: INTELLECTUAL DISABILITY
     Route: 048
     Dates: start: 20040326
  11. RISPERDAL [Suspect]
     Active Substance: RISPERIDONE
     Indication: OPPOSITIONAL DEFIANT DISORDER
     Route: 048
     Dates: start: 20120730
  12. RISPERDAL [Suspect]
     Active Substance: RISPERIDONE
     Indication: OPPOSITIONAL DEFIANT DISORDER
     Route: 048
     Dates: start: 19980604, end: 20051201
  13. RISPERDAL [Suspect]
     Active Substance: RISPERIDONE
     Indication: ATTENTION DEFICIT/HYPERACTIVITY DISORDER
     Route: 048
     Dates: start: 20040326
  14. RISPERIDONE. [Suspect]
     Active Substance: RISPERIDONE
     Indication: INTELLECTUAL DISABILITY
     Route: 048
     Dates: start: 19980604, end: 20051201
  15. RISPERDAL [Suspect]
     Active Substance: RISPERIDONE
     Indication: INTELLECTUAL DISABILITY
     Route: 048
     Dates: start: 20050708, end: 20051013
  16. RISPERDAL [Suspect]
     Active Substance: RISPERIDONE
     Indication: OPPOSITIONAL DEFIANT DISORDER
     Route: 048
     Dates: start: 20051201
  17. RISPERDAL [Suspect]
     Active Substance: RISPERIDONE
     Indication: ATTENTION DEFICIT/HYPERACTIVITY DISORDER
     Route: 048
     Dates: start: 19980604, end: 20051201
  18. RISPERDAL [Suspect]
     Active Substance: RISPERIDONE
     Indication: ATTENTION DEFICIT/HYPERACTIVITY DISORDER
     Route: 048
     Dates: start: 20120730
  19. RISPERDAL [Suspect]
     Active Substance: RISPERIDONE
     Indication: ATTENTION DEFICIT/HYPERACTIVITY DISORDER
     Route: 048
     Dates: start: 20051201
  20. RISPERDAL [Suspect]
     Active Substance: RISPERIDONE
     Indication: OPPOSITIONAL DEFIANT DISORDER
     Route: 048
     Dates: start: 20050120
  21. RISPERIDONE. [Suspect]
     Active Substance: RISPERIDONE
     Indication: ATTENTION DEFICIT/HYPERACTIVITY DISORDER
     Route: 048
     Dates: start: 20120730
  22. RISPERDAL [Suspect]
     Active Substance: RISPERIDONE
     Indication: INTELLECTUAL DISABILITY
     Route: 048
     Dates: start: 20120730
  23. RISPERDAL [Suspect]
     Active Substance: RISPERIDONE
     Indication: ATTENTION DEFICIT/HYPERACTIVITY DISORDER
     Route: 048
     Dates: start: 20040930, end: 20041206
  24. RISPERDAL [Suspect]
     Active Substance: RISPERIDONE
     Indication: ATTENTION DEFICIT/HYPERACTIVITY DISORDER
     Route: 048
     Dates: start: 20050708, end: 20051013
  25. RISPERDAL [Suspect]
     Active Substance: RISPERIDONE
     Indication: INTELLECTUAL DISABILITY
     Route: 048
     Dates: start: 19980604, end: 20051201
  26. RISPERDAL [Suspect]
     Active Substance: RISPERIDONE
     Indication: OPPOSITIONAL DEFIANT DISORDER
     Route: 048
     Dates: start: 20120730
  27. RISPERDAL [Suspect]
     Active Substance: RISPERIDONE
     Indication: ATTENTION DEFICIT/HYPERACTIVITY DISORDER
     Route: 048
     Dates: start: 20120730
  28. RISPERIDONE. [Suspect]
     Active Substance: RISPERIDONE
     Indication: OPPOSITIONAL DEFIANT DISORDER
     Route: 048
     Dates: start: 20120730
  29. RISPERDAL [Suspect]
     Active Substance: RISPERIDONE
     Indication: INTELLECTUAL DISABILITY
     Route: 048
     Dates: start: 20051201
  30. RISPERDAL [Suspect]
     Active Substance: RISPERIDONE
     Indication: OPPOSITIONAL DEFIANT DISORDER
     Route: 048
     Dates: start: 20050503
  31. RISPERDAL [Suspect]
     Active Substance: RISPERIDONE
     Indication: OPPOSITIONAL DEFIANT DISORDER
     Route: 048
     Dates: start: 20040326
  32. RISPERDAL [Suspect]
     Active Substance: RISPERIDONE
     Indication: OPPOSITIONAL DEFIANT DISORDER
     Route: 048
     Dates: start: 20040723
  33. RISPERDAL [Suspect]
     Active Substance: RISPERIDONE
     Indication: ATTENTION DEFICIT/HYPERACTIVITY DISORDER
     Route: 048
     Dates: start: 20050120
  34. RISPERIDONE. [Suspect]
     Active Substance: RISPERIDONE
     Indication: INTELLECTUAL DISABILITY
     Route: 048
     Dates: start: 20120730
  35. RISPERDAL [Suspect]
     Active Substance: RISPERIDONE
     Indication: INTELLECTUAL DISABILITY
     Route: 048
     Dates: start: 20050120
  36. RISPERDAL [Suspect]
     Active Substance: RISPERIDONE
     Indication: INTELLECTUAL DISABILITY
     Route: 048
     Dates: start: 20040930, end: 20041206

REACTIONS (4)
  - Product use in unapproved indication [Unknown]
  - Gynaecomastia [Unknown]
  - Off label use [Unknown]
  - Emotional disorder [Unknown]

NARRATIVE: CASE EVENT DATE: 19980604
